FAERS Safety Report 8899360 (Version 1)
Quarter: 2012Q4

REPORT INFORMATION
  Report Type: 
  Country: BR (occurrence: BR)
  Receive Date: 20121109
  Receipt Date: 20121109
  Transmission Date: 20130627
  Serious: Yes (Hospitalization)
  Sender: FDA-Public Use
  Company Number: BR-ROCHE-1153896

PATIENT
  Sex: Male
  Weight: 54 kg

DRUGS (2)
  1. COPEGUS [Suspect]
     Indication: PRODUCT USED FOR UNKNOWN INDICATION
     Route: 065
  2. ROFERON-A [Suspect]
     Indication: HEPATITIS C
     Route: 065

REACTIONS (2)
  - Haemorrhoids [Recovered/Resolved]
  - Alcohol abuse [Not Recovered/Not Resolved]
